FAERS Safety Report 8711149 (Version 2)
Quarter: 2013Q4

REPORT INFORMATION
  Report Type: Spontaneous
  Country: US (occurrence: US)
  Receive Date: 20120807
  Receipt Date: 20131101
  Transmission Date: 20140711
  Serious: No
  Sender: FDA-Public Use
  Company Number: US-009507513-1208USA002286

PATIENT
  Age: 13 Year
  Sex: Female
  Weight: 42.63 kg

DRUGS (2)
  1. CLARITIN-D-12 [Suspect]
     Indication: SEASONAL ALLERGY
     Dosage: 5 MG, ONCE
     Route: 048
     Dates: start: 20120720
  2. CLARITIN-D-12 [Suspect]
     Indication: MEDICAL OBSERVATION

REACTIONS (1)
  - Expired drug administered [Recovering/Resolving]
